FAERS Safety Report 5713924-X (Version None)
Quarter: 2008Q2

REPORT INFORMATION
  Report Type: 
  Country: None (occurrence: None)
  Receive Date: 20080421
  Receipt Date: 20080421
  Transmission Date: 20081010
  Serious: Yes (Other)
  Sender: FDA-Public Use
  Company Number: None

PATIENT
  Age: 54 Year
  Sex: Female
  Weight: 79.3795 kg

DRUGS (2)
  1. FOSAMAX [Suspect]
     Indication: OSTEOPENIA
     Dosage: 70 MG ONCE A WEEK PO
     Route: 048
  2. ALENDRONATE SODIUM [Suspect]
     Dosage: 70 MG ONCE A WEEK PO
     Route: 048

REACTIONS (1)
  - OSTEONECROSIS [None]
